FAERS Safety Report 8500397-7 (Version None)
Quarter: 2012Q3

REPORT INFORMATION
  Report Type: 
  Country: None (occurrence: None)
  Receive Date: 20120710
  Receipt Date: 20120702
  Transmission Date: 20120928
  Serious: Yes (Hospitalization)
  Sender: FDA-Public Use
  Company Number: US-ABBOTT-12P-163-0925962-00

PATIENT
  Sex: Female
  Weight: 145.73 kg

DRUGS (9)
  1. LYRICA [Suspect]
     Indication: PRODUCT USED FOR UNKNOWN INDICATION
  2. ALBUTEROL [Concomitant]
     Indication: PRODUCT USED FOR UNKNOWN INDICATION
  3. METHOTREXATE [Concomitant]
     Indication: PRODUCT USED FOR UNKNOWN INDICATION
  4. HUMIRA [Suspect]
     Indication: RHEUMATOID ARTHRITIS
     Route: 058
     Dates: start: 20120327
  5. PREDNISONE TAB [Suspect]
     Indication: PAIN
     Dosage: 5-10MG (DOSE DETERMINED BY PAIN LEVEL)
  6. ZANAFLEX [Concomitant]
     Indication: MUSCLE SPASMS
  7. FOLIC ACID [Concomitant]
     Indication: PRODUCT USED FOR UNKNOWN INDICATION
  8. SYMBICORT [Concomitant]
     Indication: PRODUCT USED FOR UNKNOWN INDICATION
     Dosage: QAM AND QHS
  9. MAXALT SL [Concomitant]
     Indication: MIGRAINE

REACTIONS (6)
  - PHOTOPHOBIA [None]
  - EYE PAIN [None]
  - RHEUMATOID ARTHRITIS [None]
  - VISION BLURRED [None]
  - FIBROMYALGIA [None]
  - SINUSITIS [None]
